FAERS Safety Report 9314701 (Version 1)
Quarter: 2013Q2

REPORT INFORMATION
  Report Type: Spontaneous
  Country: FR (occurrence: FR)
  Receive Date: 20130529
  Receipt Date: 20130529
  Transmission Date: 20140414
  Serious: Yes (Hospitalization)
  Sender: FDA-Public Use
  Company Number: FR-BRISTOL-MYERS SQUIBB COMPANY-18929323

PATIENT
  Age: 80 Year
  Sex: Female

DRUGS (9)
  1. COUMADINE [Suspect]
     Dosage: 1 DF-1 TABLT
     Route: 048
     Dates: end: 20121215
  2. CLOPIDOGREL BISULFATE [Suspect]
     Route: 048
     Dates: end: 20121215
  3. EUPRESSYL [Concomitant]
  4. FUROSEMIDE [Concomitant]
  5. PERINDOPRIL [Concomitant]
  6. HEMIGOXINE NATIVELLE [Concomitant]
  7. OMEPRAZOLE [Concomitant]
  8. LASILIX [Concomitant]
  9. KAYEXALATE [Concomitant]

REACTIONS (3)
  - Anaemia [Recovered/Resolved]
  - Haemarthrosis [Recovered/Resolved]
  - Hypoprothrombinaemia [Recovered/Resolved]
